FAERS Safety Report 15683620 (Version 1)
Quarter: 2018Q4

REPORT INFORMATION
  Report Type: Spontaneous
  Country: EC (occurrence: EC)
  Receive Date: 20181204
  Receipt Date: 20181204
  Transmission Date: 20190205
  Serious: Yes (Other)
  Sender: FDA-Public Use
  Company Number: EC-TEVA-2018-EC-982781

PATIENT
  Age: 57 Year
  Sex: Female

DRUGS (4)
  1. FEXOFENADINE [Suspect]
     Active Substance: FEXOFENADINE\FEXOFENADINE HYDROCHLORIDE
     Indication: URTICARIAL VASCULITIS
     Dosage: UP TO FOURFOLD DOSAGE
     Route: 065
  2. HYDROXYZINE [Suspect]
     Active Substance: HYDROXYZINE HYDROCHLORIDE
     Indication: URTICARIAL VASCULITIS
     Dosage: AT NIGHT
     Route: 065
  3. HYDROXYCHLOROQUINE [Suspect]
     Active Substance: HYDROXYCHLOROQUINE
     Indication: URTICARIAL VASCULITIS
     Route: 065
  4. PREDNISONE. [Suspect]
     Active Substance: PREDNISONE
     Indication: URTICARIAL VASCULITIS
     Dosage: FOLLOWED BY GRADUAL TAPERING OFF FOR A TOTAL OF 12 DAYS
     Route: 048

REACTIONS (1)
  - Drug ineffective [Unknown]
